FAERS Safety Report 6280657-3 (Version None)
Quarter: 2009Q3

REPORT INFORMATION
  Report Type: 
  Country: None (occurrence: None)
  Receive Date: 20090724
  Receipt Date: 20081107
  Transmission Date: 20100115
  Serious: No
  Sender: FDA-Public Use
  Company Number: A0755594A

PATIENT
  Age: 50 Year
  Sex: Male

DRUGS (6)
  1. AVANDIA [Suspect]
     Dosage: 8MG PER DAY
     Route: 048
     Dates: start: 20070101
  2. METOPROLOL SUCCINATE [Concomitant]
  3. LISINOPRIL [Concomitant]
  4. AMLODIPINE [Concomitant]
  5. GLIPIZIDE [Concomitant]
  6. LANTUS [Concomitant]

REACTIONS (4)
  - ABDOMINAL DISTENSION [None]
  - DYSPNOEA [None]
  - FATIGUE [None]
  - SWELLING [None]
